FAERS Safety Report 21759520 (Version 1)
Quarter: 2022Q4

REPORT INFORMATION
  Report Type: Report from Study
  Country: GB (occurrence: GB)
  Receive Date: 20221221
  Receipt Date: 20221221
  Transmission Date: 20230112
  Serious: Yes (Hospitalization)
  Sender: FDA-Public Use
  Company Number: GB-ASTELLAS-2019US024972

PATIENT

DRUGS (3)
  1. DEXAMETHASONE [Suspect]
     Active Substance: DEXAMETHASONE
     Indication: Product used for unknown indication
     Dosage: 40 MG, CYCLIC ( CYCLE 1 , 12 DAYS CYCLE)
     Route: 065
     Dates: start: 20170923, end: 20171011
  2. BENDAMUSTINE HYDROCHLORIDE [Suspect]
     Active Substance: BENDAMUSTINE HYDROCHLORIDE
     Indication: Product used for unknown indication
     Dosage: 125 MG, CYCLIC ( CYCLE 1, 8 DAY CYCLE)
     Route: 042
     Dates: start: 20170927, end: 20171011
  3. THALIDOMIDE [Suspect]
     Active Substance: THALIDOMIDE
     Indication: Product used for unknown indication
     Dosage: 100 MG, CYCLIC ( CYCLE 1, 21 DAY CYCLE)
     Route: 065
     Dates: start: 20171010, end: 20171011

REACTIONS (2)
  - Vomiting [Recovered/Resolved]
  - Infection [Recovered/Resolved]

NARRATIVE: CASE EVENT DATE: 20171011
